FAERS Safety Report 19659896 (Version 1)
Quarter: 2021Q3

REPORT INFORMATION
  Report Type: Spontaneous
  Country: US (occurrence: US)
  Receive Date: 20210804
  Receipt Date: 20210804
  Transmission Date: 20211014
  Serious: Yes (Other)
  Sender: FDA-Public Use
  Company Number: None

PATIENT
  Age: 75 Year
  Sex: Female

DRUGS (4)
  1. CAPECITABINE 500MG TABLETS [Suspect]
     Active Substance: CAPECITABINE
     Indication: GASTRIC CANCER
     Route: 048
     Dates: start: 20210731, end: 20210802
  2. OXYCODONE [Concomitant]
     Active Substance: OXYCODONE
  3. ELOXATIN AQ [Concomitant]
  4. TYENOL [Concomitant]

REACTIONS (2)
  - Dysphagia [None]
  - Peripheral swelling [None]

NARRATIVE: CASE EVENT DATE: 20210731
